FAERS Safety Report 8827640 (Version 1)
Quarter: 2012Q4

REPORT INFORMATION
  Report Type: 
  Country: US (occurrence: US)
  Receive Date: 20121005
  Receipt Date: 20121005
  Transmission Date: 20130627
  Serious: Yes (Death, Hospitalization, Other)
  Sender: FDA-Public Use
  Company Number: US-ROCHE-1096749

PATIENT
  Age: 64 Year
  Sex: Female

DRUGS (5)
  1. RITUXAN [Suspect]
     Indication: CHRONIC LYMPHOCYTIC LEUKAEMIA
     Route: 050
  2. CYCLOPHOSPHAMIDE [Concomitant]
     Route: 050
  3. HYDROXYDAUNORUBICIN [Concomitant]
     Route: 050
  4. ONCOVIN [Concomitant]
     Route: 050
  5. PREDNISONE [Concomitant]
     Route: 050

REACTIONS (22)
  - Death [Fatal]
  - Odynophagia [Unknown]
  - Nausea [Unknown]
  - Dysphagia [Unknown]
  - Vomiting [Unknown]
  - Decreased appetite [Unknown]
  - Hypophagia [Unknown]
  - Stomatitis [Unknown]
  - Dehydration [Unknown]
  - Infection [Unknown]
  - Chronic sinusitis [Unknown]
  - Hyponatraemia [Unknown]
  - Asthenia [Unknown]
  - Lymphocytic leukaemia [Unknown]
  - Cough [Unknown]
  - Malaise [Unknown]
  - Abdominal pain [Unknown]
  - Abdominal pain upper [Unknown]
  - Tongue ulceration [Unknown]
  - Malaise [Unknown]
  - Fatigue [Unknown]
  - Pyrexia [Unknown]
